FAERS Safety Report 4639233-8 (Version None)
Quarter: 2005Q2

REPORT INFORMATION
  Report Type: 
  Country: None (occurrence: None)
  Receive Date: 20050418
  Receipt Date: 20050404
  Transmission Date: 20051028
  Serious: Yes (Hospitalization)
  Sender: FDA-Public Use
  Company Number: 2005-127129-NL

PATIENT
  Age: 30 Year
  Sex: Female

DRUGS (7)
  1. CHORIONIC GONADOTROPIN [Suspect]
     Dosage: 5000 IU
  2. LEUPROLIDE ACETATE [Suspect]
     Dosage: 10 IU
  3. UROFOLLITROPIN [Suspect]
     Dosage: 225 IU/150 IU
  4. UROFOLLITROPIN [Suspect]
     Dosage: 225 IU/150 IU
  5. PREDNISOLONE [Concomitant]
  6. DOXYCYCLINE [Concomitant]
  7. PROGESTERONE [Concomitant]

REACTIONS (5)
  - ASCITES [None]
  - DECREASED ACTIVITY [None]
  - DELIRIUM [None]
  - DEPRESSED LEVEL OF CONSCIOUSNESS [None]
  - OVARIAN HYPERSTIMULATION SYNDROME [None]
